FAERS Safety Report 11589037 (Version 1)
Quarter: 2015Q4

REPORT INFORMATION
  Report Type: Spontaneous
  Country: US (occurrence: US)
  Receive Date: 20151002
  Receipt Date: 20151002
  Transmission Date: 20160304
  Serious: Yes (Hospitalization, Other)
  Sender: FDA-Public Use
  Company Number: US-BAYER-2015-432676

PATIENT
  Age: 35 Year
  Sex: Female
  Weight: 64.4 kg

DRUGS (37)
  1. EPINEPHRINE. [Concomitant]
     Active Substance: EPINEPHRINE
  2. EFFEXOR [Concomitant]
     Active Substance: VENLAFAXINE HYDROCHLORIDE
  3. ALBUTEROL. [Concomitant]
     Active Substance: ALBUTEROL
     Indication: ASTHMA
     Dosage: 90 MCG
     Dates: start: 20040902
  4. CEFEPIME [Concomitant]
     Active Substance: CEFEPIME HYDROCHLORIDE
  5. MICONAZOLE. [Concomitant]
     Active Substance: MICONAZOLE
  6. METRONIDAZOLE. [Concomitant]
     Active Substance: METRONIDAZOLE
  7. SINGULAIR [Concomitant]
     Active Substance: MONTELUKAST SODIUM
     Dosage: 10 MG, UNK
     Route: 048
     Dates: start: 20040915
  8. ADVAIR DISKUS [Concomitant]
     Active Substance: FLUTICASONE PROPIONATE\SALMETEROL XINAFOATE
     Indication: ASTHMA
     Dosage: 100-50 MCG
     Dates: start: 20041201
  9. PREVACID [Concomitant]
     Active Substance: LANSOPRAZOLE
     Indication: GASTROOESOPHAGEAL REFLUX DISEASE
     Dosage: 15 MG, UNK
     Route: 048
     Dates: start: 20041201
  10. ZYVOX [Concomitant]
     Active Substance: LINEZOLID
  11. YAZ [Suspect]
     Active Substance: DROSPIRENONE\ETHINYL ESTRADIOL
     Route: 048
  12. ZYPREXA [Concomitant]
     Active Substance: OLANZAPINE
  13. ATIVAN [Concomitant]
     Active Substance: LORAZEPAM
  14. VANCOMYCIN [Concomitant]
     Active Substance: VANCOMYCIN
  15. ULTRAM [Concomitant]
     Active Substance: TRAMADOL HYDROCHLORIDE
  16. FLAGYL [Concomitant]
     Active Substance: METRONIDAZOLE\METRONIDAZOLE HYDROCHLORIDE
  17. AMANTADINE [Concomitant]
     Active Substance: AMANTADINE
  18. ADVAIR HFA [Concomitant]
     Active Substance: FLUTICASONE PROPIONATE\SALMETEROL XINAFOATE
  19. LORAZEPAM. [Concomitant]
     Active Substance: LORAZEPAM
  20. CLARINEX [LORATADINE,PSEUDOEPHEDRINE SULFATE] [Concomitant]
  21. REGLAN [Concomitant]
     Active Substance: METOCLOPRAMIDE HYDROCHLORIDE
  22. PROTONIX [Concomitant]
     Active Substance: PANTOPRAZOLE SODIUM
  23. BACTROBAN [Concomitant]
     Active Substance: MUPIROCIN\MUPIROCIN CALCIUM
  24. ALBUTEROL. [Concomitant]
     Active Substance: ALBUTEROL
     Indication: ASTHMA
     Dosage: 90 MCG
     Dates: start: 20041021
  25. ALBUTEROL. [Concomitant]
     Active Substance: ALBUTEROL
     Indication: ASTHMA
     Dosage: 90 MCG
     Dates: start: 20041201
  26. CLARITIN [Concomitant]
     Active Substance: LORATADINE
     Dosage: 5 MG, UNK
     Route: 048
  27. OLANZAPINE. [Concomitant]
     Active Substance: OLANZAPINE
  28. PYRIDIUM [Concomitant]
     Active Substance: PHENAZOPYRIDINE
  29. CIPRO [Concomitant]
     Active Substance: CIPROFLOXACIN HYDROCHLORIDE
  30. YASMIN [Suspect]
     Active Substance: DROSPIRENONE\ETHINYL ESTRADIOL
     Route: 048
  31. XOPENEX [Concomitant]
     Active Substance: LEVALBUTEROL HYDROCHLORIDE
     Dosage: 0.63 MG, UNK
     Dates: start: 20041201
  32. DOPAMINE [Concomitant]
     Active Substance: DOPAMINE\DOPAMINE HYDROCHLORIDE
  33. BACTRIM [Concomitant]
     Active Substance: SULFAMETHOXAZOLE\TRIMETHOPRIM
  34. SINGULAIR [Concomitant]
     Active Substance: MONTELUKAST SODIUM
     Dosage: 10 MG, UNK
     Route: 048
     Dates: start: 20040805
  35. ZOLOFT [Concomitant]
     Active Substance: SERTRALINE HYDROCHLORIDE
  36. ATROPINE. [Concomitant]
     Active Substance: ATROPINE
  37. LIDODERM [Concomitant]
     Active Substance: LIDOCAINE

REACTIONS (7)
  - Pulmonary embolism [None]
  - Lacunar infarction [None]
  - Deep vein thrombosis [None]
  - Cerebrovascular accident [None]
  - Brain injury [None]
  - Pelvic venous thrombosis [None]
  - Cardio-respiratory arrest [None]

NARRATIVE: CASE EVENT DATE: 200412
